FAERS Safety Report 4779092-6 (Version None)
Quarter: 2005Q3

REPORT INFORMATION
  Report Type: 
  Country: None (occurrence: None)
  Receive Date: 20050914
  Receipt Date: 20050606
  Transmission Date: 20060218
  Serious: Yes (Other)
  Sender: FDA-Public Use
  Company Number: 407113

PATIENT
  Age: 83 Year
  Sex: Female
  Weight: 47.2 kg

DRUGS (1)
  1. BONIVA [Suspect]
     Indication: ARTHRITIS
     Dosage: 1 PER MONTH ORAL
     Route: 048
     Dates: start: 20050604, end: 20050604

REACTIONS (10)
  - ABDOMINAL DISTENSION [None]
  - EPISTAXIS [None]
  - HEADACHE [None]
  - HOT FLUSH [None]
  - NAUSEA [None]
  - PAIN [None]
  - PAIN IN EXTREMITY [None]
  - RASH [None]
  - TENDERNESS [None]
  - TINNITUS [None]
